FAERS Safety Report 12088840 (Version 2)
Quarter: 2016Q4

REPORT INFORMATION
  Report Type: Spontaneous
  Country: FR (occurrence: FR)
  Receive Date: 20160218
  Receipt Date: 20161021
  Transmission Date: 20170206
  Serious: Yes (Disabling, Other)
  Sender: FDA-Public Use
  Company Number: FR-MYLANLABS-2016M1005998

PATIENT

DRUGS (4)
  1. MYLAN-AMIODARONE [Suspect]
     Active Substance: AMIODARONE
     Indication: ATRIAL FIBRILLATION
     Dosage: 200 MG, QD
     Dates: start: 20150401, end: 201508
  2. DIGOXINE [Concomitant]
     Active Substance: DIGOXIN
     Indication: ATRIAL FIBRILLATION
     Dosage: 0.125 UNK, UNK
     Dates: start: 20150720, end: 20160204
  3. RIVAROXABAN [Concomitant]
     Active Substance: RIVAROXABAN
     Indication: ATRIAL FIBRILLATION
     Dosage: UNK
     Dates: start: 201503, end: 20160204
  4. LEVOTHYROXINE. [Concomitant]
     Active Substance: LEVOTHYROXINE
     Indication: HYPERTHYROIDISM
     Dosage: 125 ID

REACTIONS (4)
  - Blindness unilateral [Not Recovered/Not Resolved]
  - Optic atrophy [Not Recovered/Not Resolved]
  - Arrhythmia [Unknown]
  - Papilloedema [Unknown]

NARRATIVE: CASE EVENT DATE: 20150731
